FAERS Safety Report 4658242-6 (Version None)
Quarter: 2005Q2

REPORT INFORMATION
  Report Type: 
  Country: None (occurrence: None)
  Receive Date: 20050505
  Receipt Date: 20050316
  Transmission Date: 20051028
  Serious: No
  Sender: FDA-Public Use
  Company Number: 2005USFACT00414

PATIENT

DRUGS (1)
  1. FACTIVE [Suspect]
     Indication: RESPIRATORY TRACT INFECTION BACTERIAL
     Dates: start: 20050301, end: 20050301

REACTIONS (3)
  - COORDINATION ABNORMAL [None]
  - DELUSION [None]
  - HALLUCINATION [None]
